FAERS Safety Report 9579555 (Version 2)
Quarter: 2013Q4

REPORT INFORMATION
  Report Type: Spontaneous
  Country: US (occurrence: US)
  Receive Date: 20131001
  Receipt Date: 20131001
  Transmission Date: 20140711
  Serious: No
  Sender: FDA-Public Use
  Company Number: US-AMGEN-USASP2013005130

PATIENT
  Age: 55 Year
  Sex: Female
  Weight: 90.7 kg

DRUGS (7)
  1. ENBREL [Suspect]
     Indication: RHEUMATOID ARTHRITIS
     Dosage: 50 MG, QWK
     Dates: start: 20121126
  2. SYNTHROID [Concomitant]
     Dosage: 100 MUG, UNK
  3. BYSTOLIC [Concomitant]
     Dosage: 10 MG, UNK
  4. METHOTREXATE [Concomitant]
     Dosage: 50 MG/2ML
  5. FOLIC ACID [Concomitant]
     Dosage: UNK
  6. MENEST                             /00073001/ [Concomitant]
     Dosage: 0.625 MG, UNK
  7. MELATONIN [Concomitant]
     Dosage: 10 MG, UNK

REACTIONS (4)
  - Injection site pain [Recovered/Resolved]
  - Injection site erythema [Not Recovered/Not Resolved]
  - Injection site pruritus [Recovered/Resolved]
  - Injection site discolouration [Recovered/Resolved]
